FAERS Safety Report 4353277-5 (Version None)
Quarter: 2004Q2

REPORT INFORMATION
  Report Type: 
  Country: None (occurrence: None)
  Receive Date: 20040428
  Receipt Date: 20040416
  Transmission Date: 20050107
  Serious: Yes (Hospitalization)
  Sender: FDA-Public Use
  Company Number: WAES 0404USA01642

PATIENT
  Age: 72 Year
  Sex: Female
  Weight: 71.6683 kg

DRUGS (10)
  1. DECADRON [Suspect]
     Indication: PROPHYLAXIS
     Dosage: 32 MG /DAILY/ PO
     Route: 048
     Dates: start: 20040202, end: 20040203
  2. DECADRON [Suspect]
     Indication: NON-SMALL CELL LUNG CANCER
     Dosage: SEE IMAGE
     Route: 042
     Dates: start: 20040210
  3. INJ GEMCITABINE HCL UNK [Suspect]
     Indication: NON-SMALL CELL LUNG CANCER
     Dosage: 800 MG/M[2]/DAILY/IV
     Route: 042
     Dates: start: 20040210
  4. INJ DOXETAXEL UNK [Suspect]
     Indication: NON-SMALL CELL LUNG CANCER
     Dosage: 40 MG/M[2]/DAILY/IV
     Route: 042
     Dates: start: 20040210
  5. ATIVAN [Concomitant]
  6. AXID [Concomitant]
  7. COUMADIN [Concomitant]
  8. HYZAAR [Concomitant]
  9. TORECAN [Concomitant]
  10. ASPIRIN [Concomitant]

REACTIONS (6)
  - DIARRHOEA HAEMORRHAGIC [None]
  - EROSIVE DUODENITIS [None]
  - INTERNATIONAL NORMALISED RATIO DECREASED [None]
  - NAUSEA [None]
  - VOMITING [None]
  - WHITE BLOOD CELL COUNT DECREASED [None]
